FAERS Safety Report 6326834-4 (Version None)
Quarter: 2009Q3

REPORT INFORMATION
  Report Type: 
  Country: None (occurrence: None)
  Receive Date: 20090825
  Receipt Date: 20090820
  Transmission Date: 20100115
  Serious: Yes (Hospitalization)
  Sender: FDA-Public Use
  Company Number: CA-ROCHE-651821

PATIENT
  Age: 70 Year
  Sex: Female

DRUGS (2)
  1. NAPROXEN [Suspect]
     Dosage: STOP DATE: MAY 2009
     Route: 048
     Dates: start: 20090516, end: 20090101
  2. NAPROXEN [Suspect]
     Dosage: OTHER INDICATION: WOUND ON HAND
     Route: 048
     Dates: start: 20090607, end: 20090601

REACTIONS (3)
  - PNEUMONIA [None]
  - PYREXIA [None]
  - RENAL DISORDER [None]
